FAERS Safety Report 11156168 (Version 1)
Quarter: 2015Q2

REPORT INFORMATION
  Report Type: Report from Study
  Country: BR (occurrence: BR)
  Receive Date: 20150602
  Receipt Date: 20150602
  Transmission Date: 20150821
  Serious: Yes (Other)
  Sender: FDA-Public Use
  Company Number: BR-BAYER-2015-275942

PATIENT
  Age: 59 Year
  Sex: Female

DRUGS (1)
  1. NEXAVAR [Suspect]
     Active Substance: SORAFENIB
     Indication: RENAL CANCER
     Route: 048

REACTIONS (4)
  - Abasia [Recovered/Resolved]
  - Dry skin [Recovered/Resolved]
  - Hyperkeratosis [Recovered/Resolved]
  - Plantar erythema [Recovered/Resolved]
